FAERS Safety Report 22104961 (Version 2)
Quarter: 2023Q1

REPORT INFORMATION
  Report Type: Report from Study
  Country: US (occurrence: US)
  Receive Date: 20230316
  Receipt Date: 20230321
  Transmission Date: 20230418
  Serious: No
  Sender: FDA-Public Use
  Company Number: US-002147023-NVSC2023US058703

PATIENT
  Sex: Female

DRUGS (1)
  1. KESIMPTA [Suspect]
     Active Substance: OFATUMUMAB
     Indication: Multiple sclerosis
     Dosage: 1 DOSAGE FORM, QMO (20 MG)
     Route: 058
     Dates: start: 20230118

REACTIONS (4)
  - Vision blurred [Unknown]
  - Hypoaesthesia [Unknown]
  - Dental paraesthesia [Unknown]
  - Paraesthesia [Unknown]
